FAERS Safety Report 10515046 (Version 1)
Quarter: 2014Q4

REPORT INFORMATION
  Report Type: Spontaneous
  Country: US (occurrence: US)
  Receive Date: 20141013
  Receipt Date: 20141013
  Transmission Date: 20150528
  Serious: Yes (Death, Hospitalization)
  Sender: FDA-Public Use
  Company Number: PHHY2014US131081

PATIENT
  Age: 72 Year
  Sex: Female

DRUGS (5)
  1. CARBOPLATIN. [Suspect]
     Active Substance: CARBOPLATIN
     Indication: NON-SMALL CELL LUNG CANCER
  2. GEMCITABINE [Suspect]
     Active Substance: GEMCITABINE\GEMCITABINE HYDROCHLORIDE
     Indication: NON-SMALL CELL LUNG CANCER
  3. GEMCITABINE [Suspect]
     Active Substance: GEMCITABINE\GEMCITABINE HYDROCHLORIDE
     Indication: SQUAMOUS CELL CARCINOMA OF LUNG
  4. ETOPOSIDE. [Suspect]
     Active Substance: ETOPOSIDE
     Indication: METASTASES TO LIVER
  5. CARBOPLATIN. [Suspect]
     Active Substance: CARBOPLATIN
     Indication: SQUAMOUS CELL CARCINOMA OF LUNG

REACTIONS (35)
  - Death [Fatal]
  - Fall [Unknown]
  - Heart rate increased [Unknown]
  - Breath sounds abnormal [Unknown]
  - Lethargy [Unknown]
  - Alanine aminotransferase increased [Unknown]
  - Blood calcium decreased [Unknown]
  - Blood sodium decreased [Unknown]
  - Cachexia [Unknown]
  - Blood uric acid increased [Unknown]
  - Blood lactic acid increased [Unknown]
  - Hepatic mass [Unknown]
  - Venous pressure jugular increased [Unknown]
  - Lymphadenopathy [Unknown]
  - Asthenia [Unknown]
  - Blood bilirubin increased [Unknown]
  - Blood chloride decreased [Unknown]
  - Blood creatinine increased [Unknown]
  - Chest pain [Unknown]
  - General physical health deterioration [Unknown]
  - Unresponsive to stimuli [Unknown]
  - Aspartate aminotransferase increased [Unknown]
  - Blood magnesium increased [Unknown]
  - Tumour lysis syndrome [Unknown]
  - Brain natriuretic peptide increased [Unknown]
  - Jaundice [Unknown]
  - Nausea [Unknown]
  - Blood bicarbonate decreased [Unknown]
  - Malaise [Unknown]
  - Blood alkaline phosphatase increased [Unknown]
  - Blood potassium increased [Unknown]
  - Blood phosphorus increased [Unknown]
  - Metastases to liver [Unknown]
  - Blood pressure diastolic decreased [Unknown]
  - Oedema [Unknown]
